FAERS Safety Report 18480834 (Version 8)
Quarter: 2022Q1

REPORT INFORMATION
  Report Type: Report from Study
  Country: US (occurrence: US)
  Receive Date: 20201109
  Receipt Date: 20220113
  Transmission Date: 20220423
  Serious: Yes (Hospitalization)
  Sender: FDA-Public Use
  Company Number: US-NOVARTISPH-NVSC2020US300091

PATIENT
  Sex: Female

DRUGS (1)
  1. COSENTYX [Suspect]
     Active Substance: SECUKINUMAB
     Indication: Product used for unknown indication
     Dosage: 300 MG/ML (2 X 150 MG/ML)
     Route: 065

REACTIONS (4)
  - Fall [Unknown]
  - Pain [Unknown]
  - Gait disturbance [Unknown]
  - Amnesia [Unknown]
